FAERS Safety Report 17035808 (Version 1)
Quarter: 2019Q4

REPORT INFORMATION
  Report Type: Spontaneous
  Country: US (occurrence: US)
  Receive Date: 20191114
  Receipt Date: 20191114
  Transmission Date: 20200122
  Serious: Yes (Hospitalization)
  Sender: FDA-Public Use
  Company Number: None

PATIENT
  Age: 47 Year
  Sex: Male

DRUGS (13)
  1. AMLODIPINE [Concomitant]
     Active Substance: AMLODIPINE BESYLATE
     Dates: start: 20190613
  2. PROSTIN [Concomitant]
     Active Substance: ALPROSTADIL
     Dates: start: 19001101
  3. SERTRALINE [Concomitant]
     Active Substance: SERTRALINE HYDROCHLORIDE
     Dates: start: 20120103
  4. CICLOPIROX. [Concomitant]
     Active Substance: CICLOPIROX
     Dates: start: 20190916
  5. ENBREL [Suspect]
     Active Substance: ETANERCEPT
     Indication: PSORIATIC ARTHROPATHY
     Dosage: ?          OTHER FREQUENCY:WEEKLY;?
     Route: 058
     Dates: start: 20170714
  6. ACID CONTRL [Concomitant]
     Dates: start: 20101008
  7. LIDOCAINE. [Concomitant]
     Active Substance: LIDOCAINE
     Dates: start: 20190920
  8. SYNTHROID [Concomitant]
     Active Substance: LEVOTHYROXINE SODIUM
     Dates: start: 20190904
  9. DICLOFENAC [Concomitant]
     Active Substance: DICLOFENAC
     Dates: start: 20190927
  10. DICYCLOMINE [Concomitant]
     Active Substance: DICYCLOMINE HYDROCHLORIDE
     Dates: start: 20101008
  11. METFORMIN [Concomitant]
     Active Substance: METFORMIN HYDROCHLORIDE
     Dates: start: 20130809
  12. LISINOPRIL. [Suspect]
     Active Substance: LISINOPRIL
     Dates: start: 20190624
  13. HYDROCHLOROT [Concomitant]
     Active Substance: HYDROCHLOROTHIAZIDE
     Dates: start: 20191113

REACTIONS (3)
  - Infection [None]
  - Adverse drug reaction [None]
  - Therapy cessation [None]
